FAERS Safety Report 6084300-8 (Version None)
Quarter: 2009Q1

REPORT INFORMATION
  Report Type: 
  Country: None (occurrence: None)
  Receive Date: 20090217
  Receipt Date: 20090217
  Transmission Date: 20090719
  Serious: Yes (Hospitalization)
  Sender: FDA-Public Use
  Company Number: None

PATIENT
  Sex: Male
  Weight: 97.5234 kg

DRUGS (18)
  1. TEMOZOLOMIDE [Suspect]
     Indication: GLIOBLASTOMA MULTIFORME
     Dosage: 170MG QD PO
     Route: 048
     Dates: start: 20081229, end: 20090210
  2. TEMOZOLOMIDE [Suspect]
  3. TEMOZOLOMIDE [Suspect]
  4. AMBIEN [Concomitant]
  5. BACTRIM [Concomitant]
  6. COLACE [Concomitant]
  7. FERROUS SULFATE TAB [Concomitant]
  8. METOPROLOL [Concomitant]
  9. OMEPRAZOLE [Concomitant]
  10. ZOFRAN [Concomitant]
  11. JANTOVEN [Concomitant]
  12. LIDODERN [Concomitant]
  13. LYRICA [Concomitant]
  14. NEURONTIN [Concomitant]
  15. NORTRIPTYLINE HCL [Concomitant]
  16. OXYCODONE [Concomitant]
  17. SENOKOT [Concomitant]
  18. TYLENOL [Concomitant]

REACTIONS (1)
  - PNEUMONIA [None]
